FAERS Safety Report 5213724-3 (Version None)
Quarter: 2007Q1

REPORT INFORMATION
  Report Type: 
  Country: None (occurrence: None)
  Receive Date: 20070119
  Receipt Date: 20070109
  Transmission Date: 20070707
  Serious: Yes (Other)
  Sender: FDA-Public Use
  Company Number: US-PFIZER INC-2007002829

PATIENT
  Sex: Female
  Weight: 38.6 kg

DRUGS (4)
  1. ZITHROMAX [Suspect]
     Indication: BACTERIAL INFECTION
     Route: 048
  2. PREMARIN [Concomitant]
  3. SYNTHROID [Concomitant]
  4. ASPIRIN [Concomitant]

REACTIONS (3)
  - ARTHRITIS [None]
  - DRUG ADMINISTRATION ERROR [None]
  - TENDON DISORDER [None]
